FAERS Safety Report 20607237 (Version 1)
Quarter: 2022Q1

REPORT INFORMATION
  Report Type: Spontaneous
  Country: None (occurrence: US)
  Receive Date: 20220317
  Receipt Date: 20220317
  Transmission Date: 20220423
  Serious: Yes (Other)
  Sender: FDA-Public Use
  Company Number: US-Performance Health, LLC-2126881

PATIENT
  Sex: Female

DRUGS (1)
  1. BIOFREEZE ROLL-ON [Suspect]
     Active Substance: MENTHOL
     Route: 061

REACTIONS (1)
  - Alopecia [Unknown]
